FAERS Safety Report 12656195 (Version 1)
Quarter: 2016Q3

REPORT INFORMATION
  Report Type: Spontaneous
  Country: US (occurrence: US)
  Receive Date: 20160816
  Receipt Date: 20160816
  Transmission Date: 20161109
  Serious: No
  Sender: FDA-Public Use
  Company Number: US-GALDERMA-US15007450

PATIENT
  Sex: Female
  Weight: 77.5 kg

DRUGS (16)
  1. BECLOMETHASONE [Concomitant]
     Active Substance: BECLOMETHASONE
     Dosage: 80 MCG
  2. LIDOCAINE JELLY [Concomitant]
     Active Substance: LIDOCAINE
     Dosage: 2%
     Route: 061
  3. LORATADINE. [Concomitant]
     Active Substance: LORATADINE
     Dosage: 10 MG
     Route: 048
  4. PREGABALIN. [Concomitant]
     Active Substance: PREGABALIN
     Dosage: 150MG
     Route: 048
  5. PROMETHAZINE [Concomitant]
     Active Substance: PROMETHAZINE\PROMETHAZINE HYDROCHLORIDE
     Dosage: 25MG
     Route: 048
  6. METROGEL [Suspect]
     Active Substance: METRONIDAZOLE
     Dosage: 1%
     Route: 061
  7. DIVALPROEX ER [Concomitant]
     Active Substance: DIVALPROEX SODIUM
     Dosage: 500 MG
     Route: 048
  8. RANITIDINE. [Concomitant]
     Active Substance: RANITIDINE
     Dosage: 300MG
     Route: 048
  9. DULOXETINE DR [Concomitant]
     Active Substance: DULOXETINE
     Dosage: 60 MG
     Route: 048
  10. EPINEPHERINE PEN INJECTOR [Concomitant]
     Indication: ANAPHYLACTIC REACTION
     Dosage: 0.3ML
     Route: 030
  11. TRAMADOL. [Concomitant]
     Active Substance: TRAMADOL
     Indication: PAIN
     Dosage: 200MG
     Route: 048
  12. ALBUTEROL INHALER [Concomitant]
     Active Substance: ALBUTEROL
     Indication: WHEEZING
     Dosage: 90 MCG
  13. TEMOVATE (CLOBETASOL) 0.05% CREAM [Concomitant]
     Dosage: 0.05%
     Route: 061
  14. COLACE (DOCUSATE) [Concomitant]
     Route: 048
  15. PYRIDOXINE [Concomitant]
     Active Substance: PYRIDOXINE
     Dosage: 100MG
     Route: 048
  16. VITAMIN B-12 SL [Concomitant]
     Dosage: 1000 MCG
     Route: 048

REACTIONS (1)
  - Lip swelling [Unknown]
